FAERS Safety Report 5489392-2 (Version None)
Quarter: 2007Q4

REPORT INFORMATION
  Report Type: 
  Country: None (occurrence: None)
  Receive Date: 20071018
  Receipt Date: 20071009
  Transmission Date: 20080405
  Serious: Yes (Hospitalization)
  Sender: FDA-Public Use
  Company Number: US-AMGEN-US247161

PATIENT

DRUGS (3)
  1. NEULASTA [Suspect]
     Indication: CHEMOTHERAPY
     Route: 065
  2. CISPLATIN [Concomitant]
     Route: 065
  3. ETOPOSIDE [Concomitant]
     Route: 065

REACTIONS (1)
  - DRUG INEFFECTIVE [None]
